FAERS Safety Report 16186625 (Version 5)
Quarter: 2019Q4

REPORT INFORMATION
  Report Type: Report from Study
  Country: US (occurrence: US)
  Receive Date: 20190411
  Receipt Date: 20191120
  Transmission Date: 20200122
  Serious: Yes (Death, Hospitalization, Disabling, Other)
  Sender: FDA-Public Use
  Company Number: US-ACTELION-A-US2018-177299

PATIENT
  Age: 86 Year
  Sex: Female

DRUGS (1)
  1. OPSUMIT [Suspect]
     Active Substance: MACITENTAN
     Indication: ESSENTIAL HYPERTENSION
     Dosage: 10 MG, QD
     Route: 048
     Dates: start: 20140812

REACTIONS (13)
  - Peripheral swelling [Unknown]
  - Joint swelling [Unknown]
  - Death [Fatal]
  - Investigation [Unknown]
  - Ovarian cancer [Unknown]
  - Transfusion [Unknown]
  - Swelling [Unknown]
  - Hernia [Unknown]
  - Blood count abnormal [Unknown]
  - Fatigue [Unknown]
  - Intestinal obstruction [Unknown]
  - Dyspnoea [Unknown]
  - Hernia repair [Unknown]

NARRATIVE: CASE EVENT DATE: 20190512
